FAERS Safety Report 10936736 (Version 1)
Quarter: 2015Q1

REPORT INFORMATION
  Report Type: Spontaneous
  Country: US (occurrence: None)
  Receive Date: 20150212
  Receipt Date: 20150212
  Transmission Date: 20150721
  Serious: No
  Sender: FDA-Public Use
  Company Number: TPA2011A08339

PATIENT
  Age: 56 Year
  Sex: Male
  Weight: 113.4 kg

DRUGS (3)
  1. METOPROLOL (METOPROLOL) [Concomitant]
     Active Substance: METOPROLOL
  2. UNSPECIFIED ANTIDEPRESSANT (ANTIDEPRESSANTS) [Concomitant]
  3. ULORIC [Suspect]
     Active Substance: FEBUXOSTAT
     Indication: GOUT
     Route: 048
     Dates: start: 2011

REACTIONS (2)
  - Condition aggravated [None]
  - Arthralgia [None]
